FAERS Safety Report 18107186 (Version 1)
Quarter: 2020Q3

REPORT INFORMATION
  Report Type: Spontaneous
  Country: US (occurrence: US)
  Receive Date: 20200803
  Receipt Date: 20200803
  Transmission Date: 20201103
  Serious: No
  Sender: FDA-Public Use
  Company Number: None

PATIENT
  Age: 80 Year
  Sex: Male
  Weight: 75.15 kg

DRUGS (10)
  1. FERROUS GLUCONATE [Concomitant]
     Active Substance: FERROUS GLUCONATE
  2. METOPROLOL. [Concomitant]
     Active Substance: METOPROLOL
  3. FAMOTIDINE. [Concomitant]
     Active Substance: FAMOTIDINE
  4. LISINOPRIL. [Concomitant]
     Active Substance: LISINOPRIL
  5. NIFEDIPINE. [Concomitant]
     Active Substance: NIFEDIPINE
  6. CAPECITABINE. [Suspect]
     Active Substance: CAPECITABINE
     Indication: RECTAL CANCER
     Route: 048
     Dates: start: 20190722
  7. ATORVASTATIN [Concomitant]
     Active Substance: ATORVASTATIN
  8. ASPIRIN. [Concomitant]
     Active Substance: ASPIRIN
  9. ESZOPLICONE [Concomitant]
     Active Substance: ESZOPICLONE
  10. HYVEE ADVANCE ANTACID [Concomitant]

REACTIONS (1)
  - Hypoaesthesia [None]

NARRATIVE: CASE EVENT DATE: 20200803
